FAERS Safety Report 9252391 (Version 1)
Quarter: 2013Q1

REPORT INFORMATION
  Report Type: Spontaneous
  Country: US (occurrence: None)
  Receive Date: 20130305
  Receipt Date: 20130305
  Transmission Date: 20140127
  Serious: Yes (Other)
  Sender: FDA-Public Use
  Company Number: 163-21880-12083315

PATIENT
  Age: 65 Year
  Sex: Male

DRUGS (1)
  1. REVLIMID [Suspect]
     Indication: PLASMA CELL MYELOMA
     Dosage: 5MG, 21 IN 28 D, PO
     Route: 048
     Dates: start: 20120816

REACTIONS (4)
  - Neuropathy peripheral [None]
  - Hypoaesthesia [None]
  - Rash pruritic [None]
  - Insomnia [None]
